FAERS Safety Report 8429334-0 (Version None)
Quarter: 2012Q2

REPORT INFORMATION
  Report Type: 
  Country: None (occurrence: None)
  Receive Date: 20120612
  Receipt Date: 20120604
  Transmission Date: 20120825
  Serious: Yes (Hospitalization, Other)
  Sender: FDA-Public Use
  Company Number: US-BAYER-2012-012300

PATIENT
  Age: 37 Year
  Sex: Female
  Weight: 106.58 kg

DRUGS (4)
  1. YAZ [Suspect]
     Indication: VAGINAL HAEMORRHAGE
  2. FLUOXETINE [Concomitant]
     Indication: DEPRESSION
     Dosage: UNK
     Dates: start: 20050101
  3. YAZ [Suspect]
     Indication: CONTRACEPTION
     Dosage: UNK
     Dates: start: 20060601, end: 20071201
  4. PROZAC [Concomitant]

REACTIONS (10)
  - PAIN [None]
  - ABORTION SPONTANEOUS [None]
  - ANXIETY [None]
  - MENTAL DISORDER [None]
  - DEFORMITY [None]
  - IDIOPATHIC THROMBOCYTOPENIC PURPURA [None]
  - CHOLECYSTITIS [None]
  - CHOLECYSTITIS ACUTE [None]
  - INJURY [None]
  - ANHEDONIA [None]
